FAERS Safety Report 7186803-1 (Version None)
Quarter: 2010Q4

REPORT INFORMATION
  Report Type: 
  Country: None (occurrence: None)
  Receive Date: 20101222
  Receipt Date: 20101220
  Transmission Date: 20110411
  Serious: Yes (Hospitalization)
  Sender: FDA-Public Use
  Company Number: A0900456A

PATIENT
  Age: 72 Year
  Sex: Female

DRUGS (1)
  1. KIVEXA [Suspect]
     Indication: HIV INFECTION
     Route: 065

REACTIONS (2)
  - ADVERSE EVENT [None]
  - CEREBROVASCULAR ACCIDENT [None]
